FAERS Safety Report 9722420 (Version 1)
Quarter: 2013Q4

REPORT INFORMATION
  Report Type: Spontaneous
  Country: BR (occurrence: BR)
  Receive Date: 20131202
  Receipt Date: 20131202
  Transmission Date: 20140711
  Serious: Yes (Hospitalization, Other)
  Sender: FDA-Public Use
  Company Number: PHHY2013BR138851

PATIENT
  Age: 2 Year
  Sex: Male

DRUGS (1)
  1. TRILEPTAL [Suspect]
     Indication: EMOTIONAL DISORDER
     Dosage: 3.5 ML, BID
     Route: 048
     Dates: start: 20130823

REACTIONS (9)
  - Oropharyngeal pain [Recovered/Resolved]
  - Blood potassium decreased [Recovered/Resolved]
  - Pneumonia [Recovered/Resolved]
  - Pyrexia [Recovered/Resolved]
  - Milk allergy [Recovering/Resolving]
  - Malnutrition [Recovering/Resolving]
  - Weight decreased [Recovering/Resolving]
  - Dermatitis [Recovering/Resolving]
  - Apathy [Recovering/Resolving]
